FAERS Safety Report 22863531 (Version 3)
Quarter: 2023Q4

REPORT INFORMATION
  Report Type: Report from Study
  Country: US (occurrence: US)
  Receive Date: 20230825
  Receipt Date: 20231115
  Transmission Date: 20240109
  Serious: No
  Sender: FDA-Public Use
  Company Number: US-ACADIA PHARMACEUTICALS INC.-ACA-2023-PIM-003265

PATIENT
  Sex: Male

DRUGS (14)
  1. NUPLAZID [Suspect]
     Active Substance: PIMAVANSERIN TARTRATE
     Indication: Parkinson^s disease psychosis
     Dosage: 34 MILLIGRAM, QD
     Route: 048
     Dates: start: 20230719
  2. NUPLAZID [Suspect]
     Active Substance: PIMAVANSERIN TARTRATE
     Indication: Hallucination
  3. NUPLAZID [Suspect]
     Active Substance: PIMAVANSERIN TARTRATE
     Indication: Delusion
  4. AMANTADINE HYDROCHLORIDE [Concomitant]
     Active Substance: AMANTADINE HYDROCHLORIDE
     Dosage: 100 MILLIGRAM
  5. ASPIRIN [Concomitant]
     Active Substance: ASPIRIN
     Dosage: 81 MILLIGRAM
  6. CARBIDOPA\LEVODOPA [Concomitant]
     Active Substance: CARBIDOPA\LEVODOPA
     Dosage: 25-100 MG
  7. MEMANTINE HYDROCHLORIDE [Concomitant]
     Active Substance: MEMANTINE HYDROCHLORIDE
     Dosage: 10 MILLIGRAM
  8. METOPROLOL SUCCINATE [Concomitant]
     Active Substance: METOPROLOL SUCCINATE
     Dosage: 200 MILLIGRAM
  9. MIRALAX [Concomitant]
     Active Substance: POLYETHYLENE GLYCOL 3350
     Dosage: 17 GRAM/SCOOP
  10. ROPINIROLE HYDROCHLORIDE [Concomitant]
     Active Substance: ROPINIROLE HYDROCHLORIDE
     Dosage: 5 MILLIGRAM
  11. MELATONIN [Concomitant]
     Active Substance: MELATONIN
     Dosage: 10 MILLIGRAM, TBD
  12. VITAMINS NOS [Concomitant]
     Active Substance: VITAMINS
  13. RYTARY [Concomitant]
     Active Substance: CARBIDOPA\LEVODOPA
     Dosage: CPC 23.75-95 MG
  14. ATORVASTATIN [Concomitant]
     Active Substance: ATORVASTATIN
     Dosage: 80 MILLIGRAM

REACTIONS (21)
  - Sleep terror [Unknown]
  - Drug interaction [Unknown]
  - Mobility decreased [Not Recovered/Not Resolved]
  - Psychotic disorder [Not Recovered/Not Resolved]
  - Balance disorder [Not Recovered/Not Resolved]
  - Loss of personal independence in daily activities [Not Recovered/Not Resolved]
  - Paranoia [Not Recovered/Not Resolved]
  - Thinking abnormal [Not Recovered/Not Resolved]
  - Insomnia [Not Recovered/Not Resolved]
  - Asthenia [Not Recovered/Not Resolved]
  - Bradykinesia [Not Recovered/Not Resolved]
  - Slow speech [Not Recovered/Not Resolved]
  - Fatigue [Not Recovered/Not Resolved]
  - Fall [Unknown]
  - Aggression [Unknown]
  - Confusional state [Not Recovered/Not Resolved]
  - Hallucinations, mixed [Not Recovered/Not Resolved]
  - Constipation [Not Recovered/Not Resolved]
  - Hallucination [Not Recovered/Not Resolved]
  - Drug ineffective [Not Recovered/Not Resolved]
  - Constipation [Not Recovered/Not Resolved]
